FAERS Safety Report 13853398 (Version 1)
Quarter: 2017Q3

REPORT INFORMATION
  Report Type: Spontaneous
  Country: US (occurrence: US)
  Receive Date: 20170810
  Receipt Date: 20170810
  Transmission Date: 20171127
  Serious: Yes (Death)
  Sender: FDA-Public Use
  Company Number: None

PATIENT
  Sex: Male

DRUGS (5)
  1. LONSURF [Suspect]
     Active Substance: TIPIRACIL HYDROCHLORIDE\TRIFLURIDINE
     Indication: COLON CANCER
     Route: 048
     Dates: start: 201705, end: 201708
  2. AMBIEN [Concomitant]
     Active Substance: ZOLPIDEM TARTRATE
  3. POTASSIUM [Concomitant]
     Active Substance: POTASSIUM
  4. HYDROMORPHON [Concomitant]
     Active Substance: HYDROMORPHONE
  5. METHADONE [Concomitant]
     Active Substance: METHADONE HYDROCHLORIDE

REACTIONS (1)
  - Death [None]
